FAERS Safety Report 5134496-7 (Version None)
Quarter: 2006Q4

REPORT INFORMATION
  Report Type: 
  Country: None (occurrence: None)
  Receive Date: 20061019
  Receipt Date: 20061003
  Transmission Date: 20070319
  Serious: Yes (Hospitalization)
  Sender: FDA-Public Use
  Company Number: US200610000661

PATIENT
  Sex: Female

DRUGS (1)
  1. CYMBALTA [Suspect]
     Indication: DEPRESSION
     Dosage: 60 MG,

REACTIONS (4)
  - BIPOLAR I DISORDER [None]
  - HYPERSENSITIVITY [None]
  - INFECTION [None]
  - MULTIPLE ALLERGIES [None]
